FAERS Safety Report 5974282-9 (Version None)
Quarter: 2008Q4

REPORT INFORMATION
  Report Type: 
  Country: None (occurrence: None)
  Receive Date: 20081201
  Receipt Date: 20081129
  Transmission Date: 20090506
  Serious: Yes (Life-Threatening, Other)
  Sender: FDA-Public Use
  Company Number: US-PFIZER INC-2008091898

PATIENT
  Sex: Female
  Weight: 59 kg

DRUGS (7)
  1. CHANTIX [Suspect]
     Indication: SMOKING CESSATION THERAPY
     Dates: start: 20080809, end: 20080816
  2. SPIRONOLACTONE [Concomitant]
  3. POTASSIUM CHLORIDE [Concomitant]
  4. FELODIPINE [Concomitant]
  5. AVAPRO [Concomitant]
  6. METOPROLOL TARTRATE [Concomitant]
  7. CLONIDINE [Concomitant]

REACTIONS (3)
  - DEPRESSION SUICIDAL [None]
  - QUALITY OF LIFE DECREASED [None]
  - SUICIDAL IDEATION [None]
